FAERS Safety Report 5160415-3 (Version None)
Quarter: 2006Q4

REPORT INFORMATION
  Report Type: 
  Country: None (occurrence: None)
  Receive Date: 20061120
  Receipt Date: 20061113
  Transmission Date: 20070319
  Serious: Yes (Other)
  Sender: FDA-Public Use
  Company Number: 149830USA

PATIENT
  Age: 78 Year
  Sex: Female

DRUGS (1)
  1. FEXOFENADINE HYDROCHLORIDE [Suspect]
     Indication: SEASONAL ALLERGY
     Dosage: 120 MG (60 MG, 2 IN 1 D), ORAL
     Route: 048
     Dates: start: 20060301, end: 20060301

REACTIONS (3)
  - HALLUCINATION, AUDITORY [None]
  - TINNITUS [None]
  - VIIITH NERVE INJURY [None]
